FAERS Safety Report 5034061-6 (Version None)
Quarter: 2006Q2

REPORT INFORMATION
  Report Type: 
  Country: None (occurrence: None)
  Receive Date: 20060626
  Receipt Date: 20060614
  Transmission Date: 20061013
  Serious: Yes (Other)
  Sender: FDA-Public Use
  Company Number: JP-BRISTOL-MYERS SQUIBB COMPANY-13419734

PATIENT
  Age: 53 Year
  Sex: Male

DRUGS (3)
  1. GATIFLOXACIN [Suspect]
     Indication: ACUTE SINUSITIS
     Route: 048
     Dates: start: 20060531, end: 20060531
  2. MUCODYNE [Concomitant]
     Route: 048
     Dates: start: 20060531
  3. LYSOZYME HCL [Concomitant]
     Route: 048
     Dates: start: 20060531

REACTIONS (2)
  - ERYTHEMA [None]
  - EYELID OEDEMA [None]
